FAERS Safety Report 11260151 (Version 1)
Quarter: 2015Q3

REPORT INFORMATION
  Report Type: Spontaneous
  Country: PT (occurrence: PT)
  Receive Date: 20150710
  Receipt Date: 20150710
  Transmission Date: 20151125
  Serious: Yes (Hospitalization)
  Sender: FDA-Public Use
  Company Number: PT-ABBVIE-15P-130-1424783-00

PATIENT
  Age: 42 Year
  Sex: Female
  Weight: 56 kg

DRUGS (3)
  1. CODIPRONT [Suspect]
     Active Substance: CODEINE\PHENYLTOLOXAMINE
     Indication: RESPIRATORY TRACT INFECTION
     Route: 065
     Dates: start: 20070421, end: 20070501
  2. AULIN [Suspect]
     Active Substance: NIMESULIDE
     Indication: RESPIRATORY TRACT INFECTION
     Route: 065
     Dates: start: 20070421, end: 20070501
  3. KLACID [Suspect]
     Active Substance: CLARITHROMYCIN
     Indication: RESPIRATORY TRACT INFECTION
     Route: 065
     Dates: start: 20070421, end: 20070501

REACTIONS (7)
  - Aphthous ulcer [Recovered/Resolved]
  - Conjunctivitis [Recovered/Resolved]
  - Stevens-Johnson syndrome [Recovered/Resolved]
  - Rash pruritic [Recovered/Resolved]
  - Oral mucosa erosion [Recovered/Resolved]
  - Rash generalised [Recovered/Resolved]
  - Pain [Recovered/Resolved]

NARRATIVE: CASE EVENT DATE: 20070424
